FAERS Safety Report 17623591 (Version 2)
Quarter: 2020Q2

REPORT INFORMATION
  Report Type: Spontaneous
  Country: US (occurrence: US)
  Receive Date: 20200403
  Receipt Date: 20200423
  Transmission Date: 20200713
  Serious: Yes (Other)
  Sender: FDA-Public Use
  Company Number: US-SUPERNUS PHARMACEUTICALS, INC.-2020SUP00059

PATIENT
  Sex: Female

DRUGS (1)
  1. OXTELLAR XR [Suspect]
     Active Substance: OXCARBAZEPINE
     Indication: SEIZURE
     Dosage: 300 MG, 1X/DAY AT NIGHT
     Route: 048

REACTIONS (2)
  - Musculoskeletal pain [Unknown]
  - Asthma [Not Recovered/Not Resolved]
